FAERS Safety Report 16438511 (Version 1)
Quarter: 2019Q2

REPORT INFORMATION
  Report Type: Spontaneous
  Country: US (occurrence: US)
  Receive Date: 20190617
  Receipt Date: 20190617
  Transmission Date: 20190711
  Serious: Yes (Other)
  Sender: FDA-Public Use
  Company Number: US-GLAXOSMITHKLINE-US2019AMR106680

PATIENT
  Sex: Female

DRUGS (1)
  1. BENLYSTA [Suspect]
     Active Substance: BELIMUMAB
     Indication: SYSTEMIC LUPUS ERYTHEMATOSUS
     Dosage: UNK UNK, WE
     Route: 065

REACTIONS (7)
  - Diarrhoea [Unknown]
  - Pain in extremity [Unknown]
  - Rash [Unknown]
  - Neck pain [Unknown]
  - Systemic lupus erythematosus [Unknown]
  - Tremor [Unknown]
  - Product dose omission [Unknown]
